FAERS Safety Report 5800381-8 (Version None)
Quarter: 2008Q3

REPORT INFORMATION
  Report Type: 
  Country: None (occurrence: None)
  Receive Date: 20080703
  Receipt Date: 20080620
  Transmission Date: 20090109
  Serious: Yes (Hospitalization, Other)
  Sender: FDA-Public Use
  Company Number: US-MERCK-0806USA07947

PATIENT
  Age: 15 Year
  Sex: Female
  Weight: 65 kg

DRUGS (4)
  1. SINGULAIR [Suspect]
     Indication: ASTHMA EXERCISE INDUCED
     Route: 048
     Dates: end: 20051001
  2. SINGULAIR [Suspect]
     Indication: DYSPNOEA
     Route: 048
     Dates: end: 20051001
  3. ADVAIR DISKUS 100/50 [Concomitant]
     Route: 065
  4. ZYRTEC [Concomitant]
     Route: 065

REACTIONS (6)
  - ASTHMA EXERCISE INDUCED [None]
  - DEPRESSION [None]
  - DRUG INEFFECTIVE [None]
  - OROPHARYNGEAL PAIN [None]
  - SUICIDAL IDEATION [None]
  - UPPER RESPIRATORY TRACT CONGESTION [None]
